FAERS Safety Report 7884327-7 (Version None)
Quarter: 2011Q4

REPORT INFORMATION
  Report Type: 
  Country: None (occurrence: None)
  Receive Date: 20111102
  Receipt Date: 20111024
  Transmission Date: 20120403
  Serious: Yes (Hospitalization)
  Sender: FDA-Public Use
  Company Number: GB-ROCHE-1008078

PATIENT

DRUGS (2)
  1. LUCENTIS [Suspect]
     Route: 050
     Dates: start: 20110621
  2. LUCENTIS [Suspect]
     Indication: PRODUCT USED FOR UNKNOWN INDICATION
     Route: 050
     Dates: start: 20110323

REACTIONS (1)
  - LOWER RESPIRATORY TRACT INFECTION [None]
